FAERS Safety Report 6329796-9 (Version None)
Quarter: 2009Q3

REPORT INFORMATION
  Report Type: 
  Country: None (occurrence: None)
  Receive Date: 20090826
  Receipt Date: 20090821
  Transmission Date: 20100115
  Serious: Yes (Death)
  Sender: FDA-Public Use
  Company Number: PHEH2009US09728

PATIENT
  Sex: Female

DRUGS (5)
  1. GLEEVEC [Suspect]
     Indication: CHRONIC MYELOID LEUKAEMIA
     Dosage: 400 MG, QD
     Route: 048
     Dates: start: 20090501
  2. HYDROCHLOROTHIAZIDE [Concomitant]
  3. COMBIVENT                               /GFR/ [Concomitant]
  4. SYMBICORT [Concomitant]
  5. SPIRIVA [Concomitant]

REACTIONS (1)
  - LYMPHOPROLIFERATIVE DISORDER [None]
